FAERS Safety Report 5992803-7 (Version None)
Quarter: 2008Q4

REPORT INFORMATION
  Report Type: 
  Country: None (occurrence: None)
  Receive Date: 20081211
  Receipt Date: 20080530
  Transmission Date: 20090506
  Serious: No
  Sender: FDA-Public Use
  Company Number: US-AMGEN-KDL280494

PATIENT
  Sex: Male
  Weight: 90.8 kg

DRUGS (14)
  1. ENBREL [Suspect]
     Indication: RHEUMATOID ARTHRITIS
     Route: 058
     Dates: start: 20080229
  2. METHOTREXATE [Concomitant]
  3. PREDNISONE TAB [Concomitant]
     Dates: start: 20040602
  4. TOPROL-XL [Concomitant]
  5. PROTONIX [Concomitant]
  6. PLAVIX [Concomitant]
  7. ASPIRIN [Concomitant]
  8. AMBIEN [Concomitant]
  9. PERCOCET [Concomitant]
  10. LEXAPRO [Concomitant]
  11. DEPO-TESTOSTERONE [Concomitant]
  12. VICODIN [Concomitant]
  13. VYTORIN [Concomitant]
  14. COMBIVENT [Concomitant]

REACTIONS (2)
  - HYPERTENSION [None]
  - STRESS [None]
